FAERS Safety Report 4624856-2 (Version None)
Quarter: 2005Q2

REPORT INFORMATION
  Report Type: 
  Country: None (occurrence: None)
  Receive Date: 20050325
  Receipt Date: 20050106
  Transmission Date: 20051028
  Serious: No
  Sender: FDA-Public Use
  Company Number: USA050187631

PATIENT
  Age: 80 Year
  Sex: Female

DRUGS (1)
  1. FORTEO [Suspect]
     Dates: start: 20041202, end: 20041215

REACTIONS (12)
  - ABDOMINAL PAIN [None]
  - ARTHRALGIA [None]
  - BACK PAIN [None]
  - CHEST WALL PAIN [None]
  - CONSTIPATION [None]
  - DYSURIA [None]
  - FALL [None]
  - GINGIVAL SWELLING [None]
  - HEADACHE [None]
  - MOBILITY DECREASED [None]
  - PAIN IN EXTREMITY [None]
  - PROCTALGIA [None]
